FAERS Safety Report 10508353 (Version 1)
Quarter: 2014Q4

REPORT INFORMATION
  Report Type: Spontaneous
  Country: US (occurrence: None)
  Receive Date: 20141008
  Receipt Date: 20141008
  Transmission Date: 20150528
  Serious: Yes (Other)
  Sender: FDA-Public Use
  Company Number: None

PATIENT
  Age: 39 Year
  Sex: Female

DRUGS (4)
  1. LAMOTRIGINE. [Suspect]
     Active Substance: LAMOTRIGINE
     Indication: DEPRESSED MOOD
     Dosage: 2 TABS DAILY QHS/ BEDTIME ORAL
     Route: 048
     Dates: start: 20140821, end: 20141007
  2. ATIVAN [Concomitant]
     Active Substance: LORAZEPAM
  3. GABAPENTIN. [Concomitant]
     Active Substance: GABAPENTIN
  4. LAMOTRIGINE. [Suspect]
     Active Substance: LAMOTRIGINE
     Indication: BIPOLAR I DISORDER
     Dosage: 2 TABS DAILY QHS/ BEDTIME ORAL
     Route: 048
     Dates: start: 20140821, end: 20141007

REACTIONS (4)
  - Impaired work ability [None]
  - Anxiety [None]
  - Agitation [None]
  - Sensory disturbance [None]

NARRATIVE: CASE EVENT DATE: 20141003
